FAERS Safety Report 11852565 (Version 1)
Quarter: 2015Q4

REPORT INFORMATION
  Report Type: Spontaneous
  Country: US (occurrence: US)
  Receive Date: 20151218
  Receipt Date: 20151218
  Transmission Date: 20160305
  Serious: No
  Sender: FDA-Public Use
  Company Number: US-GLAXOSMITHKLINE-US2015GSK175568

PATIENT
  Sex: Female

DRUGS (2)
  1. TANZEUM [Suspect]
     Active Substance: ALBIGLUTIDE
     Indication: METABOLIC SYNDROME
  2. TANZEUM [Suspect]
     Active Substance: ALBIGLUTIDE
     Indication: INSULIN RESISTANCE
     Dosage: 30 MG, WE
     Dates: start: 201510

REACTIONS (3)
  - Device use error [Unknown]
  - Drug prescribing error [Unknown]
  - Product use issue [Unknown]
